FAERS Safety Report 14939739 (Version 2)
Quarter: 2018Q2

REPORT INFORMATION
  Report Type: Spontaneous
  Country: US (occurrence: US)
  Receive Date: 20180525
  Receipt Date: 20180530
  Transmission Date: 20180711
  Serious: No
  Sender: FDA-Public Use
  Company Number: US-PFIZER INC-2018203385

PATIENT
  Age: 66 Year
  Sex: Female
  Weight: 64 kg

DRUGS (7)
  1. SUTENT [Suspect]
     Active Substance: SUNITINIB MALATE
     Indication: SOLAR LENTIGO
  2. PREDNISONE. [Concomitant]
     Active Substance: PREDNISONE
     Indication: LUNG INFECTION
     Dosage: UNK  (3 DAYS A WEEK)
  3. VITAMIN D [Concomitant]
     Active Substance: CHOLECALCIFEROL
     Dosage: UNK
  4. POTASSIUM [Concomitant]
     Active Substance: POTASSIUM
     Dosage: UNK
  5. CALCIUM [Concomitant]
     Active Substance: CALCIUM
     Dosage: UNK
  6. OCTREOTIDE. [Concomitant]
     Active Substance: OCTREOTIDE
     Indication: NEOPLASM MALIGNANT
     Dosage: UNK, MONTHLY
  7. SUTENT [Suspect]
     Active Substance: SUNITINIB MALATE
     Indication: PANCREATIC CARCINOMA
     Dosage: 37.5 MG, DAILY
     Dates: start: 201802, end: 20180513

REACTIONS (8)
  - Product use in unapproved indication [Unknown]
  - Skin fissures [Unknown]
  - Headache [Recovered/Resolved]
  - Pain [Unknown]
  - Blister [Unknown]
  - Hyperkeratosis [Unknown]
  - Skin exfoliation [Unknown]
  - Skin irritation [Unknown]

NARRATIVE: CASE EVENT DATE: 2018
